FAERS Safety Report 7733117-4 (Version None)
Quarter: 2011Q3

REPORT INFORMATION
  Report Type: 
  Country: None (occurrence: None)
  Receive Date: 20110907
  Receipt Date: 20110825
  Transmission Date: 20111222
  Serious: Yes (Hospitalization, Other)
  Sender: FDA-Public Use
  Company Number: BE-UCBSA-040166

PATIENT
  Sex: Male

DRUGS (3)
  1. KEPPRA [Suspect]
     Indication: EPILEPSY
     Dosage: INITIATED ON AN UNKNOWN DOSE;UNKNOWN DATE : 3X500 MG;
  2. EFFEXOR [Concomitant]
  3. VIMPAT [Suspect]
     Indication: CONVULSION

REACTIONS (3)
  - ENCEPHALOPATHY [None]
  - HEPATOCELLULAR INJURY [None]
  - EPILEPSY [None]
